FAERS Safety Report 8586933-3 (Version None)
Quarter: 2012Q3

REPORT INFORMATION
  Report Type: 
  Country: None (occurrence: None)
  Receive Date: 20120810
  Receipt Date: 20120803
  Transmission Date: 20120928
  Serious: Yes (Hospitalization)
  Sender: FDA-Public Use
  Company Number: JP-VERTEX PHARMACEUTICALS INC.-AE-2012-011727

PATIENT
  Age: 47 Year
  Sex: Male

DRUGS (14)
  1. RIBAVIRIN [Concomitant]
     Indication: HEPATITIS C
     Route: 048
     Dates: start: 20120611, end: 20120613
  2. RIBAVIRIN [Concomitant]
     Route: 048
     Dates: start: 20120702, end: 20120802
  3. OLMESARTAN MEDOXOMIL [Concomitant]
     Route: 048
  4. TALION [Concomitant]
     Route: 048
     Dates: start: 20120611
  5. TELAVIC (TELAPREVIR) [Suspect]
     Route: 048
     Dates: start: 20120614, end: 20120731
  6. OMEPRAZOLE [Concomitant]
     Route: 048
     Dates: start: 20120611
  7. RIBAVIRIN [Concomitant]
     Route: 048
     Dates: start: 20120614, end: 20120701
  8. JANUVIA [Concomitant]
     Route: 048
  9. TELAVIC (TELAPREVIR) [Suspect]
     Indication: HEPATITIS C
     Route: 048
     Dates: start: 20120611, end: 20120613
  10. PEGINTERFERON ALFA-2B [Concomitant]
     Route: 058
     Dates: start: 20120611, end: 20120731
  11. AMARYL [Concomitant]
     Route: 048
  12. LOXONIN [Concomitant]
     Route: 048
     Dates: start: 20120611
  13. SELBEX [Concomitant]
     Route: 048
     Dates: start: 20120611
  14. TRICHLORMETHIAZIDE [Concomitant]
     Route: 048
     Dates: start: 20120709

REACTIONS (1)
  - RASH [None]
